FAERS Safety Report 7665574-6 (Version None)
Quarter: 2011Q3

REPORT INFORMATION
  Report Type: 
  Country: None (occurrence: None)
  Receive Date: 20110806
  Receipt Date: 20110521
  Transmission Date: 20111222
  Serious: No
  Sender: FDA-Public Use
  Company Number: US-ABBOTT-11P-163-0727670-00

PATIENT
  Sex: Male
  Weight: 99.88 kg

DRUGS (11)
  1. IBUPROFEN [Concomitant]
     Indication: ARTHRITIS
     Dosage: 600-800 /DAY AS NEEDED
  2. NIASPAN [Suspect]
     Indication: PRODUCT USED FOR UNKNOWN INDICATION
  3. VIT B12 [Suspect]
     Indication: PRODUCT USED FOR UNKNOWN INDICATION
  4. MULTI-VITAMIN [Concomitant]
     Indication: PRODUCT USED FOR UNKNOWN INDICATION
  5. NIACIN [Concomitant]
     Indication: PRODUCT USED FOR UNKNOWN INDICATION
  6. OXYCODONE HCL [Concomitant]
     Indication: ARTHRITIS
     Dosage: PER DAY AS REQUIRED; NEVER MORE THAN ONE
  7. FOLIC ACID [Concomitant]
     Indication: PRODUCT USED FOR UNKNOWN INDICATION
  8. HYDROCODONE BITARTRATE AND ACETAMINOPHEN [Concomitant]
     Indication: ARTHRITIS
     Dosage: 5/500 MG AT NIGHT WITH IBUPROFEN
  9. GEMFIBROZIL [Concomitant]
     Indication: PRODUCT USED FOR UNKNOWN INDICATION
  10. LISINOPRIL [Concomitant]
     Indication: HYPERTENSION
  11. LEVOBUNOLOL [Concomitant]
     Indication: GLAUCOMA
     Dosage: ONCE PER DAY
     Route: 047

REACTIONS (4)
  - TREMOR [None]
  - HEPATIC ENZYME INCREASED [None]
  - CHILLS [None]
  - FLUSHING [None]
